FAERS Safety Report 9868533 (Version 1)
Quarter: 2014Q1

REPORT INFORMATION
  Report Type: Spontaneous
  Country: IT (occurrence: IT)
  Receive Date: 20140204
  Receipt Date: 20140204
  Transmission Date: 20141002
  Serious: Yes (Hospitalization, Other)
  Sender: FDA-Public Use
  Company Number: IT-MYLANLABS-2014S1001525

PATIENT
  Age: 70 Year
  Sex: Female
  Weight: 0 kg

DRUGS (3)
  1. LORAZEPAM [Suspect]
     Indication: ANXIETY
     Dosage: 50 MG TOTAL
     Route: 048
     Dates: start: 20140115, end: 20140115
  2. ELOPRAM /00582602/ [Concomitant]
     Indication: PRODUCT USED FOR UNKNOWN INDICATION
  3. CARDIOASPIRIN [Concomitant]
     Indication: PRODUCT USED FOR UNKNOWN INDICATION

REACTIONS (5)
  - Overdose [Recovering/Resolving]
  - Drug abuse [Recovering/Resolving]
  - Fall [Recovering/Resolving]
  - Injury [Recovering/Resolving]
  - Speech disorder [Recovering/Resolving]
